FAERS Safety Report 19210373 (Version 1)
Quarter: 2021Q2

REPORT INFORMATION
  Report Type: Spontaneous
  Country: US (occurrence: US)
  Receive Date: 20210430
  Receipt Date: 20210430
  Transmission Date: 20210717
  Serious: Yes (Life-Threatening, Hospitalization)
  Sender: FDA-Public Use
  Company Number: None

PATIENT
  Age: 31 Year
  Sex: Male

DRUGS (3)
  1. TOPIRAMAE [Concomitant]
  2. TRAZODONE [Concomitant]
     Active Substance: TRAZODONE HYDROCHLORIDE
  3. INVEGA SUSTENNA [Suspect]
     Active Substance: PALIPERIDONE PALMITATE
     Indication: SCHIZOAFFECTIVE DISORDER BIPOLAR TYPE
     Dosage: ?          QUANTITY:1 PREFILLED SYRING;?
     Route: 030
     Dates: end: 20210421

REACTIONS (5)
  - Blood pressure increased [None]
  - Hyperhidrosis [None]
  - Tachycardia [None]
  - Hyperglycaemia [None]
  - Restlessness [None]

NARRATIVE: CASE EVENT DATE: 20210421
